FAERS Safety Report 9375231 (Version 3)
Quarter: 2013Q3

REPORT INFORMATION
  Report Type: Spontaneous
  Country: US (occurrence: US)
  Receive Date: 20130628
  Receipt Date: 20130930
  Transmission Date: 20140515
  Serious: Yes (Hospitalization, Other)
  Sender: FDA-Public Use
  Company Number: US-009507513-1306USA012389

PATIENT
  Sex: Female
  Weight: 77.98 kg

DRUGS (1)
  1. NUVARING [Suspect]
     Indication: CONTRACEPTION
     Dosage: UNK
     Route: 067
     Dates: start: 20090529, end: 2010

REACTIONS (8)
  - Meningitis viral [Unknown]
  - Pulmonary embolism [Unknown]
  - Ovarian cyst [Unknown]
  - Gastrooesophageal reflux disease [Unknown]
  - Hyperhidrosis [Unknown]
  - Chlamydial infection [Unknown]
  - Dysplasia [Unknown]
  - Arthralgia [Unknown]
